FAERS Safety Report 25088773 (Version 2)
Quarter: 2025Q2

REPORT INFORMATION
  Report Type: Report from Study
  Country: US (occurrence: US)
  Receive Date: 20250318
  Receipt Date: 20250408
  Transmission Date: 20250716
  Serious: Yes (Other)
  Sender: EXELIXIS
  Company Number: US-EXELIXIS-EXL-2025-005843

PATIENT
  Sex: Female

DRUGS (17)
  1. CABOMETYX [Suspect]
     Active Substance: CABOZANTINIB S-MALATE
     Indication: Carcinoid tumour pulmonary
     Dosage: 60 MG, QD
     Dates: start: 20250218
  2. CABOMETYX [Suspect]
     Active Substance: CABOZANTINIB S-MALATE
     Indication: Metastases to liver
  3. HEMPVANA [Concomitant]
  4. HYDROCHLOROTHIAZIDE\TRIAMTERENE [Concomitant]
     Active Substance: HYDROCHLOROTHIAZIDE\TRIAMTERENE
  5. GLIMEPIRIDE [Concomitant]
     Active Substance: GLIMEPIRIDE
  6. FUROSEMIDE [Concomitant]
     Active Substance: FUROSEMIDE
  7. POTASSIUM CHLORIDE [Concomitant]
     Active Substance: POTASSIUM CHLORIDE
  8. ESZOPICLONE [Concomitant]
     Active Substance: ESZOPICLONE
  9. DULOXETINE [Concomitant]
     Active Substance: DULOXETINE
  10. CLINDAMYCIN [Concomitant]
     Active Substance: CLINDAMYCIN
  11. XARELTO [Concomitant]
     Active Substance: RIVAROXABAN
  12. ONDANSETRON [Concomitant]
     Active Substance: ONDANSETRON
  13. JANUVIA [Concomitant]
     Active Substance: SITAGLIPTIN PHOSPHATE
  14. TRETINOIN [Concomitant]
     Active Substance: TRETINOIN
  15. LANTUS [Concomitant]
     Active Substance: INSULIN GLARGINE
  16. TORSEMIDE [Concomitant]
     Active Substance: TORSEMIDE
  17. ACETAMINOPHEN\HYDROCODONE BITARTRATE [Concomitant]
     Active Substance: ACETAMINOPHEN\HYDROCODONE BITARTRATE

REACTIONS (7)
  - Neuropathy peripheral [Unknown]
  - Abdominal discomfort [Unknown]
  - Nausea [Unknown]
  - Diarrhoea [Unknown]
  - Taste disorder [Unknown]
  - Laboratory test abnormal [Unknown]
  - Off label use [Unknown]
